FAERS Safety Report 9417553 (Version 1)
Quarter: 2013Q3

REPORT INFORMATION
  Report Type: Spontaneous
  Country: US (occurrence: US)
  Receive Date: 20130724
  Receipt Date: 20130724
  Transmission Date: 20140515
  Serious: No
  Sender: FDA-Public Use
  Company Number: US-BRISTOL-MYERS SQUIBB COMPANY-19019306

PATIENT
  Age: 80 Year
  Sex: Male
  Weight: 79.36 kg

DRUGS (2)
  1. ELIQUIS [Suspect]
     Indication: HEART RATE IRREGULAR
     Dosage: FORMULATION: ELIQUIS 5 MG TABLET?1 DF: HALF OF TABLET IN THE MORNING, AND HALF IN THE EVENING
  2. WARFARIN SODIUM [Suspect]
     Dosage: LAST ON 04APR2013
     Dates: end: 20130404

REACTIONS (1)
  - Drug dose omission [Unknown]
